FAERS Safety Report 4327809-7 (Version None)
Quarter: 2004Q1

REPORT INFORMATION
  Report Type: 
  Country: None (occurrence: None)
  Receive Date: 20040325
  Receipt Date: 20040309
  Transmission Date: 20041129
  Serious: Yes (Hospitalization)
  Sender: FDA-Public Use
  Company Number: AU-JNJFOC-20040304488

PATIENT
  Age: 64 Year
  Sex: Male

DRUGS (11)
  1. TRAMADOL HCL [Suspect]
     Indication: DRUG USE FOR UNKNOWN INDICATION
     Dosage: 300 MG, IN 1 DAY, ORAL
     Route: 048
  2. EFFEXOR XR [Concomitant]
  3. GRANOCOL (NORMACOL) [Concomitant]
  4. COLOXYL WITH SENNA (COLOXYL WITH SENNA) [Concomitant]
  5. ACTILAX (ACTILAX) [Concomitant]
  6. DIAZEPAM [Concomitant]
  7. MONOPRIL [Concomitant]
  8. HUMALOG [Concomitant]
  9. PROTAPHAN (INSULIN ISOPHANE, HUMAN BIOSYNTHETIC) [Concomitant]
  10. ATENOLOL [Concomitant]
  11. INSULIN [Concomitant]

REACTIONS (2)
  - HYPOGLYCAEMIA [None]
  - UNEXPECTED THERAPEUTIC DRUG EFFECT [None]
